FAERS Safety Report 17530046 (Version 1)
Quarter: 2020Q1

REPORT INFORMATION
  Report Type: Spontaneous
  Country: TW (occurrence: TW)
  Receive Date: 20200311
  Receipt Date: 20200311
  Transmission Date: 20200409
  Serious: Yes (Hospitalization)
  Sender: FDA-Public Use
  Company Number: TW-DSJP-DSJ-2020-108266AA

PATIENT

DRUGS (1)
  1. OLMESARTAN MEDOXOMIL_AMLODIPINE_HYDROCHLOROTHIAZIDE [Suspect]
     Active Substance: AMLODIPINE\HYDROCHLOROTHIAZIDE\OLMESARTAN
     Indication: HYPOTENSION
     Dosage: 5 MG, QD
     Route: 048
     Dates: start: 20190917, end: 20191014

REACTIONS (1)
  - Hyponatraemia [Recovering/Resolving]
